FAERS Safety Report 15168754 (Version 4)
Quarter: 2018Q4

REPORT INFORMATION
  Report Type: Spontaneous
  Country: US (occurrence: US)
  Receive Date: 20180720
  Receipt Date: 20181015
  Transmission Date: 20190204
  Serious: Yes (Other)
  Sender: FDA-Public Use
  Company Number: US-BRISTOL-MYERS SQUIBB COMPANY-BMS-2018-064469

PATIENT
  Sex: Male
  Weight: 115.65 kg

DRUGS (1)
  1. ORENCIA [Suspect]
     Active Substance: ABATACEPT
     Indication: RHEUMATOID ARTHRITIS
     Dosage: 125 MG, QWK
     Route: 058
     Dates: start: 201606

REACTIONS (5)
  - Haemorrhoids [Unknown]
  - Gastroenteritis viral [Unknown]
  - Polyp [Unknown]
  - Influenza [Unknown]
  - Adverse event [Unknown]
